FAERS Safety Report 15556973 (Version 1)
Quarter: 2018Q4

REPORT INFORMATION
  Report Type: Spontaneous
  Country: PL (occurrence: PL)
  Receive Date: 20181026
  Receipt Date: 20181026
  Transmission Date: 20190205
  Serious: Yes (Death, Other)
  Sender: FDA-Public Use
  Company Number: PL-PFM-2018-12674

PATIENT

DRUGS (2)
  1. CISPLATIN. [Concomitant]
     Active Substance: CISPLATIN
     Indication: NON-SMALL CELL LUNG CANCER
     Dosage: 3X50 MG
  2. VINORELBINE TARTRATE. [Suspect]
     Active Substance: VINORELBINE TARTRATE
     Indication: NON-SMALL CELL LUNG CANCER
     Dosage: 500 MG, UNK
     Route: 042

REACTIONS (9)
  - Intestinal obstruction [Recovered/Resolved]
  - Erythema [Unknown]
  - Bone marrow failure [Fatal]
  - Somnolence [Unknown]
  - Accidental overdose [Unknown]
  - Asthenia [Unknown]
  - Arthralgia [Unknown]
  - Malaise [Unknown]
  - Myalgia [Unknown]
